FAERS Safety Report 9896226 (Version 1)
Quarter: 2014Q1

REPORT INFORMATION
  Report Type: Spontaneous
  Country: US (occurrence: US)
  Receive Date: 20140213
  Receipt Date: 20140213
  Transmission Date: 20141002
  Serious: No
  Sender: FDA-Public Use
  Company Number: US-BRISTOL-MYERS SQUIBB COMPANY-17419706

PATIENT
  Sex: Female

DRUGS (4)
  1. ORENCIA [Suspect]
     Indication: RHEUMATOID ARTHRITIS
  2. FLONASE [Concomitant]
  3. CLARITIN [Concomitant]
  4. TYLENOL [Concomitant]

REACTIONS (1)
  - Upper-airway cough syndrome [Not Recovered/Not Resolved]
